FAERS Safety Report 9782191 (Version 1)
Quarter: 2013Q4

REPORT INFORMATION
  Report Type: Spontaneous
  Country: US (occurrence: US)
  Receive Date: 20131226
  Receipt Date: 20131226
  Transmission Date: 20140711
  Serious: Yes (Other)
  Sender: FDA-Public Use
  Company Number: US-JNJCP-30000191904

PATIENT
  Sex: Female
  Weight: 72 kg

DRUGS (1)
  1. CLEAN + CLEAR PERSA-GEL, MAXIMUM STRENGTH [Suspect]
     Indication: ACNE
     Dosage: PEA SIZE AMOUNT, THRICE
     Route: 061
     Dates: start: 20131207, end: 20131209

REACTIONS (1)
  - Hypersensitivity [Not Recovered/Not Resolved]
